FAERS Safety Report 10839694 (Version 1)
Quarter: 2015Q1

REPORT INFORMATION
  Report Type: Spontaneous
  Country: US (occurrence: US)
  Receive Date: 20150220
  Receipt Date: 20150220
  Transmission Date: 20150721
  Serious: No
  Sender: FDA-Public Use
  Company Number: US-ABBVIE-14P-163-1237301-00

PATIENT
  Age: 56 Year
  Sex: Female
  Weight: 58.11 kg

DRUGS (4)
  1. AMPHETAMINE [Concomitant]
     Active Substance: AMPHETAMINE
     Indication: DISTURBANCE IN ATTENTION
  2. HUMIRA [Suspect]
     Active Substance: ADALIMUMAB
     Indication: PSORIASIS
     Route: 058
     Dates: start: 201309, end: 20131218
  3. VENLAFAXINE [Concomitant]
     Active Substance: VENLAFAXINE HYDROCHLORIDE
     Indication: DEPRESSION
  4. HUMIRA [Suspect]
     Active Substance: ADALIMUMAB
     Indication: PSORIATIC ARTHROPATHY
     Route: 058
     Dates: start: 20140422, end: 20140422

REACTIONS (5)
  - Injury [Recovered/Resolved]
  - Drug ineffective [Unknown]
  - Device issue [Unknown]
  - Seasonal allergy [Recovered/Resolved]
  - Bacterial infection [Recovered/Resolved]

NARRATIVE: CASE EVENT DATE: 201312
